FAERS Safety Report 14031275 (Version 2)
Quarter: 2017Q4

REPORT INFORMATION
  Report Type: Other
  Country: US (occurrence: US)
  Receive Date: 20171003
  Receipt Date: 20171215
  Transmission Date: 20180321
  Serious: No
  Sender: FDA-Public Use
  Company Number: US-ORIT LABORATORIES LLC-2028476

PATIENT
  Age: 75 Year
  Sex: Female

DRUGS (4)
  1. ERGOCALCIFEROL. [Suspect]
     Active Substance: ERGOCALCIFEROL
     Indication: PARATHYROID DISORDER
     Route: 048
     Dates: start: 20170428
  2. SYNTHROID [Concomitant]
     Active Substance: LEVOTHYROXINE SODIUM
  3. LISINOPRIL. [Concomitant]
     Active Substance: LISINOPRIL
  4. PROTONIX [Concomitant]
     Active Substance: PANTOPRAZOLE SODIUM

REACTIONS (1)
  - Dyspepsia [Unknown]
